FAERS Safety Report 6792670-8 (Version None)
Quarter: 2010Q2

REPORT INFORMATION
  Report Type: 
  Country: None (occurrence: None)
  Receive Date: 20100624
  Receipt Date: 20080911
  Transmission Date: 20101027
  Serious: No
  Sender: FDA-Public Use
  Company Number: US-PFIZER INC-2008066289

PATIENT
  Sex: Female
  Weight: 54.5 kg

DRUGS (2)
  1. DEPO-PROVERA SUSPENSION/INJ [Suspect]
     Indication: CONTRACEPTION
     Dates: start: 20080701
  2. PREDNISONE [Suspect]
     Indication: URTICARIA
     Dates: start: 20080701

REACTIONS (2)
  - PRURITUS [None]
  - URTICARIA [None]
